FAERS Safety Report 11360737 (Version 1)
Quarter: 2015Q3

REPORT INFORMATION
  Report Type: Spontaneous
  Country: US (occurrence: US)
  Receive Date: 20150810
  Receipt Date: 20150810
  Transmission Date: 20151125
  Serious: Yes (Other)
  Sender: FDA-Public Use
  Company Number: US-WATSON-2015-16605

PATIENT
  Age: 85 Year
  Sex: Male

DRUGS (4)
  1. VALPROIC ACID. [Interacting]
     Active Substance: VALPROIC ACID
     Indication: AGGRESSION
     Dosage: 500 MG, DAILY
     Route: 065
  2. VALPROIC ACID. [Interacting]
     Active Substance: VALPROIC ACID
     Indication: IRRITABILITY
     Dosage: 750 MG, DAILY
     Route: 065
  3. VALPROIC ACID. [Interacting]
     Active Substance: VALPROIC ACID
     Dosage: 250 MG, DAILY
     Route: 065
  4. TOPIRAMATE (WATSON LABORATORIES) [Suspect]
     Active Substance: TOPIRAMATE
     Indication: PRODUCT USED FOR UNKNOWN INDICATION
     Dosage: 100 MG, DAILY
     Route: 065

REACTIONS (1)
  - Hyperammonaemia [Recovered/Resolved]
